FAERS Safety Report 5188188-9 (Version None)
Quarter: 2006Q4

REPORT INFORMATION
  Report Type: 
  Country: None (occurrence: None)
  Receive Date: 20061214
  Receipt Date: 20061130
  Transmission Date: 20070319
  Serious: Yes (Death)
  Sender: FDA-Public Use
  Company Number: HU200611005452

PATIENT
  Age: 55 Year
  Sex: Male
  Weight: 85 kg

DRUGS (7)
  1. CARBOPLATIN [Suspect]
     Indication: SMALL CELL LUNG CANCER STAGE UNSPECIFIED
     Dosage: 615 MG, UNK, INTRAVENOUS
     Route: 042
     Dates: start: 20061113
  2. ETOPOSIDE [Suspect]
     Indication: SMALL CELL LUNG CANCER STAGE UNSPECIFIED
     Dosage: 200 MG, OTHER, INTRAVENOUS
     Route: 042
     Dates: start: 20061113
  3. THEOPHYLLINE [Concomitant]
  4. PANTOPRAZOLE SODIUM [Concomitant]
  5. NAPROXEN [Concomitant]
  6. NADROPARIN CALCIUM (NADROPARIN CALCIUM) [Concomitant]
  7. AMBROXOL (AMBROXOL) [Concomitant]

REACTIONS (4)
  - LUNG ABSCESS [None]
  - PANCYTOPENIA [None]
  - PYOTHORAX [None]
  - SEPSIS [None]
